FAERS Safety Report 12975427 (Version 1)
Quarter: 2016Q4

REPORT INFORMATION
  Report Type: Report from Study
  Country: CA (occurrence: CA)
  Receive Date: 20161125
  Receipt Date: 20161125
  Transmission Date: 20170207
  Serious: Yes (Hospitalization)
  Sender: FDA-Public Use
  Company Number: CA-HLSUS-2016-CA-000426

PATIENT
  Age: 74 Year
  Sex: Male

DRUGS (1)
  1. CLOZARIL [Suspect]
     Active Substance: CLOZAPINE
     Route: 048
     Dates: start: 20120529

REACTIONS (4)
  - Iron deficiency [Unknown]
  - Glomerular filtration rate decreased [Unknown]
  - Microcytic anaemia [Unknown]
  - Adverse event [Unknown]

NARRATIVE: CASE EVENT DATE: 2016
